FAERS Safety Report 5214897-9 (Version None)
Quarter: 2007Q1

REPORT INFORMATION
  Report Type: 
  Country: None (occurrence: None)
  Receive Date: 20061108
  Receipt Date: 20051003
  Transmission Date: 20070707
  Serious: Yes (Other)
  Sender: FDA-Public Use
  Company Number: PHEH2005US10954

PATIENT
  Sex: Female

DRUGS (4)
  1. ESTRADERM [Suspect]
     Indication: HORMONE REPLACEMENT THERAPY
  2. PREMARIN [Suspect]
     Indication: HORMONE REPLACEMENT THERAPY
  3. PROVERA [Suspect]
     Indication: HORMONE REPLACEMENT THERAPY
  4. MEDROXYPROGESTERONE ACETATE [Suspect]
     Indication: HORMONE REPLACEMENT THERAPY

REACTIONS (5)
  - BREAST CANCER [None]
  - BREAST OPERATION [None]
  - EMOTIONAL DISTRESS [None]
  - MASTECTOMY [None]
  - SCAR [None]
